FAERS Safety Report 8155050-9 (Version None)
Quarter: 2012Q1

REPORT INFORMATION
  Report Type: 
  Country: None (occurrence: None)
  Receive Date: 20120221
  Receipt Date: 20110921
  Transmission Date: 20120608
  Serious: Yes (Other)
  Sender: FDA-Public Use
  Company Number: PHHY2011RO84857

PATIENT
  Age: 50 Year
  Sex: Male

DRUGS (1)
  1. QUETIAPINE [Suspect]
     Indication: SCHIZOPHRENIA, PARANOID TYPE
     Dosage: 800 MG/DAY
     Route: 065

REACTIONS (1)
  - BLOOD TRIGLYCERIDES INCREASED [None]
